FAERS Safety Report 19717742 (Version 2)
Quarter: 2021Q3

REPORT INFORMATION
  Report Type: Report from Study
  Country: AU (occurrence: AU)
  Receive Date: 20210819
  Receipt Date: 20210903
  Transmission Date: 20211014
  Serious: Yes (Death, Other)
  Sender: FDA-Public Use
  Company Number: AU-AMGEN-AUSSP2021126594

PATIENT
  Age: 53 Year
  Sex: Male

DRUGS (1)
  1. CARFILZOMIB [Suspect]
     Active Substance: CARFILZOMIB
     Indication: PRODUCT USED FOR UNKNOWN INDICATION
     Dosage: UNK
     Route: 065

REACTIONS (1)
  - Death [Fatal]

NARRATIVE: CASE EVENT DATE: 202108
